FAERS Safety Report 5315152-9 (Version None)
Quarter: 2007Q2

REPORT INFORMATION
  Report Type: 
  Country: None (occurrence: None)
  Receive Date: 20070427
  Receipt Date: 20070420
  Transmission Date: 20071010
  Serious: Yes (Hospitalization, Other)
  Sender: FDA-Public Use
  Company Number: 167-C5013-07010863

PATIENT
  Age: 70 Year
  Sex: Female

DRUGS (4)
  1. CC-5013 (LENALIDOMIDE) (CAPSULES) [Suspect]
     Indication: MULTIPLE MYELOMA
     Dosage: DAILY, ORAL
     Route: 048
     Dates: start: 20060101
  2. DEXAMETHASONE TAB [Suspect]
     Indication: MULTIPLE MYELOMA
     Dosage: 10 MG, EVERY WEEK, ORAL
     Route: 048
     Dates: start: 20060101
  3. ALLOPURINOL [Suspect]
     Indication: BLOOD URIC ACID INCREASED
     Dosage: DAILY
  4. COLCHICINE (COLCHICINE) [Suspect]
     Indication: BLOOD URIC ACID INCREASED
     Dosage: TWICE DAILY, ORAL
     Route: 048

REACTIONS (10)
  - ATRIAL FIBRILLATION [None]
  - BLOOD URIC ACID INCREASED [None]
  - CATABOLIC STATE [None]
  - DEHYDRATION [None]
  - DIARRHOEA INFECTIOUS [None]
  - ELECTROLYTE IMBALANCE [None]
  - HYPOALBUMINAEMIA [None]
  - HYPOVOLAEMIA [None]
  - NEUTROPHIL COUNT DECREASED [None]
  - SMALL INTESTINE ULCER [None]
